FAERS Safety Report 25763145 (Version 1)
Quarter: 2025Q3

REPORT INFORMATION
  Report Type: Spontaneous
  Country: CN (occurrence: CN)
  Receive Date: 20250905
  Receipt Date: 20250905
  Transmission Date: 20251021
  Serious: Yes (Other)
  Sender: BEIGENE
  Company Number: CN-BEIGENE-BGN-2025-014714

PATIENT
  Age: 62 Year
  Weight: 60 kg

DRUGS (8)
  1. TISLELIZUMAB [Suspect]
     Active Substance: TISLELIZUMAB
     Indication: Lung neoplasm malignant
  2. TISLELIZUMAB [Suspect]
     Active Substance: TISLELIZUMAB
     Route: 041
  3. TISLELIZUMAB [Suspect]
     Active Substance: TISLELIZUMAB
     Route: 041
  4. TISLELIZUMAB [Suspect]
     Active Substance: TISLELIZUMAB
  5. AFATINIB DIMALEATE [Suspect]
     Active Substance: AFATINIB DIMALEATE
     Indication: Lung neoplasm malignant
     Dosage: 40 MILLIGRAM, QD
     Route: 048
  6. AFATINIB DIMALEATE [Suspect]
     Active Substance: AFATINIB DIMALEATE
     Dosage: 40 MILLIGRAM, QD
  7. SODIUM CHLORIDE [Concomitant]
     Active Substance: SODIUM CHLORIDE
     Indication: Vehicle solution use
     Route: 041
  8. SODIUM CHLORIDE [Concomitant]
     Active Substance: SODIUM CHLORIDE

REACTIONS (1)
  - Myelosuppression [Recovering/Resolving]
